FAERS Safety Report 6456664-4 (Version None)
Quarter: 2009Q4

REPORT INFORMATION
  Report Type: 
  Country: None (occurrence: None)
  Receive Date: 20091125
  Receipt Date: 20081204
  Transmission Date: 20100525
  Serious: No
  Sender: FDA-Public Use
  Company Number: A0754803A

PATIENT
  Age: 36 Year
  Sex: Female

DRUGS (3)
  1. LANOXIN [Suspect]
     Indication: DRUG USE FOR UNKNOWN INDICATION
     Dosage: 250MCG TWICE PER DAY
     Route: 048
  2. DIGOXIN [Suspect]
     Route: 048
  3. LANOXICAPS [Concomitant]
     Route: 048

REACTIONS (3)
  - FEELING ABNORMAL [None]
  - HALO VISION [None]
  - PRODUCT QUALITY ISSUE [None]
